FAERS Safety Report 20043470 (Version 1)
Quarter: 2021Q4

REPORT INFORMATION
  Report Type: Spontaneous
  Country: CN (occurrence: CN)
  Receive Date: 20211108
  Receipt Date: 20211108
  Transmission Date: 20220304
  Serious: Yes (Life-Threatening)
  Sender: FDA-Public Use
  Company Number: CN-BAYER-2021A243968

PATIENT
  Age: 72 Year
  Sex: Female

DRUGS (3)
  1. LORATADINE [Suspect]
     Active Substance: LORATADINE
     Indication: Antiallergic therapy
     Dosage: 1 DF, QD
     Route: 048
     Dates: start: 20211021, end: 20211027
  2. PREGABALIN [Concomitant]
     Active Substance: PREGABALIN
     Indication: Sleep disorder
     Dosage: 1 DF, QD
     Route: 048
     Dates: start: 20211021, end: 20211027
  3. PREGABALIN [Concomitant]
     Active Substance: PREGABALIN
     Indication: Sleep disorder
     Dosage: 75 MG, QOD
     Route: 048
     Dates: start: 20211028

REACTIONS (3)
  - Dizziness [Recovered/Resolved]
  - Hallucination, visual [Recovered/Resolved]
  - Somnolence [None]

NARRATIVE: CASE EVENT DATE: 20211021
